FAERS Safety Report 5359396-9 (Version None)
Quarter: 2007Q2

REPORT INFORMATION
  Report Type: 
  Country: None (occurrence: None)
  Receive Date: 20070615
  Receipt Date: 20070529
  Transmission Date: 20071010
  Serious: Yes (Other)
  Sender: FDA-Public Use
  Company Number: US-PFIZER INC-2007045980

PATIENT
  Sex: Male
  Weight: 118.4 kg

DRUGS (9)
  1. BEXTRA [Suspect]
     Indication: TENDON OPERATION
     Route: 048
     Dates: start: 20040929, end: 20041003
  2. ACETYLSALICYLIC ACID SRT [Concomitant]
     Route: 048
     Dates: start: 20041002
  3. FERROUS SULFATE [Concomitant]
     Route: 048
  4. COLACE [Concomitant]
     Route: 048
     Dates: start: 20041002
  5. VALSARTAN [Concomitant]
     Route: 048
  6. HYDROCHLOROTHIAZIDE [Concomitant]
     Route: 048
  7. CLONIDINE [Concomitant]
     Route: 048
  8. PERCOCET [Concomitant]
     Route: 048
  9. AMBIEN [Concomitant]
     Route: 048
     Dates: start: 20041002

REACTIONS (1)
  - STEVENS-JOHNSON SYNDROME [None]
